FAERS Safety Report 6379065-6 (Version None)
Quarter: 2009Q3

REPORT INFORMATION
  Report Type: 
  Country: None (occurrence: None)
  Receive Date: 20090928
  Receipt Date: 20090917
  Transmission Date: 20100115
  Serious: No
  Sender: FDA-Public Use
  Company Number: US-B.I. PHARMACEUTICALS,INC./RIDGEFIELD-2009-BP-10980BP

PATIENT
  Age: 12 Year
  Sex: Male

DRUGS (4)
  1. CLONIDINE HCL [Suspect]
     Indication: INTERMITTENT EXPLOSIVE DISORDER
     Dosage: 0.2 MG
     Route: 048
     Dates: start: 20090401
  2. DEPAKOTE [Concomitant]
     Route: 048
  3. ABILIFY [Concomitant]
     Dosage: 30 MG
     Route: 048
  4. BUSPAR [Concomitant]
     Dosage: 30 MG
     Route: 048

REACTIONS (1)
  - TIC [None]
